FAERS Safety Report 9241758 (Version 2)
Quarter: 2013Q2

REPORT INFORMATION
  Report Type: Spontaneous
  Country: US (occurrence: US)
  Receive Date: 20130419
  Receipt Date: 20130531
  Transmission Date: 20140414
  Serious: Yes (Other)
  Sender: FDA-Public Use
  Company Number: US-JNJFOC-20130404421

PATIENT
  Age: 53 Year
  Sex: Female
  Weight: 55.79 kg

DRUGS (11)
  1. SANDOZ FENTANYL TRANSDERMAL SYSTEM [Suspect]
     Indication: PAIN
     Route: 062
     Dates: start: 2009
  2. NORCO [Concomitant]
     Indication: PAIN
     Dosage: 10MG/325MG/AS NEEDED
     Route: 048
  3. PEPCID [Concomitant]
     Indication: GASTROOESOPHAGEAL REFLUX DISEASE
     Route: 048
  4. COLACE [Concomitant]
     Indication: CONSTIPATION
     Route: 048
  5. TRAZODONE [Concomitant]
     Indication: SLEEP DISORDER
     Route: 048
  6. SEROQUEL [Concomitant]
     Indication: MENTAL DISORDER
     Dosage: BID
     Route: 048
  7. CREON [Concomitant]
     Indication: GASTROINTESTINAL DISORDER
     Route: 048
  8. ATIVAN [Concomitant]
     Indication: NEUROPATHY PERIPHERAL
     Route: 048
  9. ATIVAN [Concomitant]
     Indication: PANIC ATTACK
     Route: 048
  10. VALIUM [Concomitant]
     Indication: NEUROPATHY PERIPHERAL
     Route: 048
  11. VALIUM [Concomitant]
     Indication: PANIC ATTACK
     Route: 048

REACTIONS (6)
  - Formication [Recovered/Resolved]
  - Drug withdrawal syndrome [Recovered/Resolved]
  - Dyskinesia [Recovered/Resolved]
  - Drug ineffective [Recovered/Resolved]
  - Inappropriate schedule of drug administration [Unknown]
  - Wrong technique in drug usage process [Unknown]
